FAERS Safety Report 6972726-7 (Version None)
Quarter: 2010Q3

REPORT INFORMATION
  Report Type: 
  Country: None (occurrence: None)
  Receive Date: 20100909
  Receipt Date: 20100528
  Transmission Date: 20110219
  Serious: No
  Sender: FDA-Public Use
  Company Number: US-KINGPHARMUSA00001-K201000685

PATIENT
  Sex: Female
  Weight: 95.238 kg

DRUGS (3)
  1. CYTOMEL [Suspect]
     Indication: HYPOTHYROIDISM
     Dosage: 5 MCG, SINGLE
     Route: 048
     Dates: start: 20100101, end: 20100101
  2. CYTOMEL [Suspect]
     Dosage: 1.25 MCG, (1/4 OF 5 MCG TABLET), QD
     Route: 048
     Dates: start: 20100101, end: 20100101
  3. ALBUTEROL [Concomitant]
     Indication: ASTHMA
     Dosage: UNK, PRN

REACTIONS (2)
  - FEELING ABNORMAL [None]
  - PALPITATIONS [None]
